FAERS Safety Report 9514642 (Version 1)
Quarter: 2013Q1

REPORT INFORMATION
  Report Type: Spontaneous
  Country: US (occurrence: None)
  Receive Date: 20130305
  Receipt Date: 20130305
  Transmission Date: 20140127
  Serious: Yes (Other)
  Sender: FDA-Public Use
  Company Number: 163-21880-12112129

PATIENT
  Sex: Male
  Weight: 102.06 kg

DRUGS (20)
  1. REVLIMID (LENALIDOMIDE) [Suspect]
     Indication: PLASMA CELL MYELOMA
     Route: 048
     Dates: start: 20120405
  2. ALBUTEROL (SALBUTAMOL) [Concomitant]
  3. CYMBALTA (DULOXETINE HYDROCHLORIDE) [Concomitant]
  4. FISH OIL [Concomitant]
  5. KLOR-CON (POTASSIUM CHLORIDE) [Concomitant]
  6. LAMICTAL [Concomitant]
  7. LASIX (FUROSEMIDE) [Concomitant]
  8. LEVOTHYROXIN (LEVOTHYROXINE SODIUM) [Concomitant]
  9. MULTIVITAMINS [Concomitant]
  10. NADOLOL [Concomitant]
  11. NAMENDA (MEMANTINE HYDROCHLORIDE) [Concomitant]
  12. OMEPRAZOLE [Concomitant]
  13. PRADAXA (DABIGATRAN ETEXILATE MESILATE) [Concomitant]
  14. PROMETHAZINE [Concomitant]
  15. RESTASIS (CICLOSPORIN) [Concomitant]
  16. SIMVASTATIN [Concomitant]
  17. SYMBICORT (SYMBICORT TURBUHALER ^DRACO) [Concomitant]
  18. TYLENOL (PARACETAMOL) [Concomitant]
  19. XANAX (ALPRAZOLAM) [Concomitant]
  20. ZOMETA (ZOLEDRONIC ACID) [Concomitant]

REACTIONS (1)
  - White blood cell count decreased [None]
